FAERS Safety Report 7372330-5 (Version None)
Quarter: 2011Q1

REPORT INFORMATION
  Report Type: 
  Country: None (occurrence: None)
  Receive Date: 20110324
  Receipt Date: 20110316
  Transmission Date: 20110831
  Serious: Yes (Hospitalization)
  Sender: FDA-Public Use
  Company Number: B0706118A

PATIENT
  Sex: Male

DRUGS (7)
  1. TAREG [Suspect]
     Route: 048
  2. PHENOXYMETHYL PENICILLIN [Suspect]
     Dosage: 1UNIT TWICE PER DAY
     Route: 048
     Dates: start: 20050101
  3. HYDREA [Suspect]
     Route: 048
     Dates: start: 20050101, end: 20110201
  4. MOVIPREP [Suspect]
     Dosage: 1UNIT PER DAY
     Route: 048
  5. ALLOPURINOL [Suspect]
     Dosage: 1UNIT PER DAY
     Route: 048
  6. FLIXOTIDE [Suspect]
     Dosage: 500MCG PER DAY
     Route: 055
  7. VOLTAREN [Suspect]
     Route: 061
     Dates: end: 20110202

REACTIONS (5)
  - PAIN IN EXTREMITY [None]
  - PHLEBITIS [None]
  - GOUT [None]
  - PHLEBITIS DEEP [None]
  - VENOUS THROMBOSIS LIMB [None]
